FAERS Safety Report 9386689 (Version 1)
Quarter: 2013Q3

REPORT INFORMATION
  Report Type: Spontaneous
  Country: US (occurrence: None)
  Receive Date: 20130703
  Receipt Date: 20130703
  Transmission Date: 20140515
  Serious: Yes (Hospitalization)
  Sender: FDA-Public Use
  Company Number: None

PATIENT
  Age: 59 Year
  Sex: Female
  Weight: 38.2 kg

DRUGS (9)
  1. IRINOTECAN [Suspect]
  2. OXALIPLATIN [Suspect]
  3. CETUXIMAB [Suspect]
  4. IRONOTECAN [Concomitant]
  5. OXALIPATIN [Concomitant]
  6. CETUXIMAB [Concomitant]
  7. IRINOTECAN [Concomitant]
  8. OXALIPTIN [Concomitant]
  9. CETUXIMAB [Concomitant]

REACTIONS (4)
  - Asthenia [None]
  - Weight decreased [None]
  - Abdominal pain [None]
  - Malnutrition [None]
